FAERS Safety Report 4929795-5 (Version None)
Quarter: 2006Q1

REPORT INFORMATION
  Report Type: 
  Country: None (occurrence: None)
  Receive Date: 20060224
  Receipt Date: 20060210
  Transmission Date: 20060701
  Serious: Yes (Death, Hospitalization)
  Sender: FDA-Public Use
  Company Number: 2006S1001266

PATIENT
  Sex: 0

DRUGS (1)
  1. CLONIDINE HYDROCHLORIDE TABLETS, USP (0.3 MG) [Suspect]
     Dosage: 0.3 MG; UNKNOWN; INTRA
     Route: 042

REACTIONS (4)
  - HOMICIDE [None]
  - INCORRECT ROUTE OF DRUG ADMINISTRATION [None]
  - LUNG DISORDER [None]
  - WRONG DRUG ADMINISTERED [None]
